FAERS Safety Report 19114028 (Version 3)
Quarter: 2021Q2

REPORT INFORMATION
  Report Type: Report from Study
  Country: None (occurrence: CN)
  Receive Date: 20210408
  Receipt Date: 20210427
  Transmission Date: 20210717
  Serious: Yes (Life-Threatening, Hospitalization)
  Sender: FDA-Public Use
  Company Number: CN-ABBVIE-21P-035-3846402-00

PATIENT
  Age: 66 Year
  Sex: Male
  Weight: 55 kg

DRUGS (23)
  1. ZOLEDRONIC ACID INJECTION [Concomitant]
     Active Substance: ZOLEDRONIC ACID
     Indication: RESORPTION BONE INCREASED
     Dosage: ONCE
     Route: 041
     Dates: start: 20210326, end: 20210326
  2. POTASSIUM CHLORIDE SUSTAINED RELEASE TABLETS [Concomitant]
     Route: 048
     Dates: start: 20210329, end: 20210402
  3. POTASSIUM CHLORIDE. [Concomitant]
     Active Substance: POTASSIUM CHLORIDE
     Indication: HYPOKALAEMIA
     Dosage: ONCE
     Route: 041
     Dates: start: 20210327, end: 20210327
  4. VENETOCLAX. [Suspect]
     Active Substance: VENETOCLAX
     Indication: PLASMA CELL MYELOMA
     Route: 048
     Dates: start: 20210402, end: 20210402
  5. VENETOCLAX. [Suspect]
     Active Substance: VENETOCLAX
     Route: 048
     Dates: start: 20210407
  6. BERBERINE HYDROCHLORIDE [Concomitant]
     Active Substance: BERBERINE
     Indication: DIARRHOEA
     Route: 048
     Dates: start: 20210327, end: 20210327
  7. TRAMADOL HYDROCHLORIDE SUSTAINED RELEASE TABLETS [Concomitant]
     Dosage: ONCE
     Route: 048
     Dates: start: 20210330, end: 20210330
  8. MONTMORILLONITE POWDER [Concomitant]
     Route: 048
     Dates: start: 20210328, end: 20210330
  9. POTASSIUM CHLORIDE SUSTAINED RELEASE TABLETS [Concomitant]
     Indication: HYPOKALAEMIA
     Route: 048
     Dates: start: 20210328, end: 20210328
  10. TRAMADOL HYDROCHLORIDE SUSTAINED RELEASE TABLETS [Concomitant]
     Dosage: ONCE
     Route: 048
     Dates: start: 20210401, end: 20210401
  11. FLURBIPROFEN AXETIL [Concomitant]
     Active Substance: FLURBIPROFEN AXETIL
     Indication: BONE PAIN
     Dosage: ONCE
     Route: 041
     Dates: start: 20210401, end: 20210401
  12. ENTERAL NUTRITION POWDER [Concomitant]
     Indication: MALNUTRITION
     Dosage: RIGHT AMOUNT
     Route: 048
     Dates: start: 20210329
  13. DEXAMETHASONE. [Suspect]
     Active Substance: DEXAMETHASONE
     Indication: PLASMA CELL MYELOMA
     Dosage: DAYS 1, 8, 15, AND 22 OF EACH 28 DAY CYCLE
     Route: 048
     Dates: start: 20210402
  14. BERBERINE HYDROCHLORIDE [Concomitant]
     Active Substance: BERBERINE
     Route: 048
     Dates: start: 20210328, end: 20210330
  15. MONTMORILLONITE POWDER [Concomitant]
     Indication: DIARRHOEA
     Route: 048
     Dates: start: 20210327, end: 20210327
  16. CALCIUM CARBONATE D3 [Concomitant]
     Indication: HYPOCALCAEMIA
     Route: 048
     Dates: start: 20210327, end: 20210402
  17. ACYCLOVIR. [Concomitant]
     Active Substance: ACYCLOVIR
     Indication: ANTIVIRAL PROPHYLAXIS
     Route: 048
     Dates: start: 20210327
  18. DEXAMETHASONE SODIUM [Concomitant]
     Active Substance: DEXAMETHASONE
     Indication: NEOPLASM
     Route: 041
     Dates: start: 20210330, end: 20210330
  19. SODIUM BICARBONATE. [Concomitant]
     Active Substance: SODIUM BICARBONATE
     Indication: INFECTION PROPHYLAXIS
     Dosage: ONCE, GARGLE
     Dates: start: 20210330, end: 20210330
  20. RECOMBINANT HUMAN THROMBOPOIETIN INJECTION [Concomitant]
     Indication: PLATELET COUNT DECREASED
     Dosage: ONCE
     Route: 010
     Dates: start: 20210331, end: 20210331
  21. TRAMADOL HYDROCHLORIDE SUSTAINED RELEASE TABLETS [Concomitant]
     Indication: BONE PAIN
     Dosage: ONCE
     Route: 048
     Dates: start: 20210327, end: 20210327
  22. POTASSIUM CHLORIDE. [Concomitant]
     Active Substance: POTASSIUM CHLORIDE
     Dosage: ONCE
     Route: 048
     Dates: start: 20210327, end: 20210327
  23. PARACETAMOL AND TRAMADOL [Concomitant]
     Active Substance: ACETAMINOPHEN\TRAMADOL
     Indication: BONE PAIN
     Dosage: 1 PIECE
     Route: 048
     Dates: start: 20210401, end: 20210401

REACTIONS (1)
  - Tumour lysis syndrome [Recovered/Resolved]

NARRATIVE: CASE EVENT DATE: 20210402
